FAERS Safety Report 15878747 (Version 1)
Quarter: 2019Q1

REPORT INFORMATION
  Report Type: Spontaneous
  Country: RO (occurrence: RO)
  Receive Date: 20190128
  Receipt Date: 20190128
  Transmission Date: 20190417
  Serious: Yes (Other)
  Sender: FDA-Public Use
  Company Number: RO-MYLANLABS-2019M1006201

PATIENT
  Age: 58 Year
  Sex: Male

DRUGS (3)
  1. FLUTICASONE PROPIONATE. [Suspect]
     Active Substance: FLUTICASONE PROPIONATE
     Indication: ASTHMA
     Dosage: UNK
     Route: 055
  2. BETAMETHASONE. [Suspect]
     Active Substance: BETAMETHASONE
     Indication: ASTHMA
     Dosage: UNK
     Route: 045
  3. BUDESONIDE. [Suspect]
     Active Substance: BUDESONIDE
     Indication: ASTHMA
     Dosage: UNK
     Route: 055

REACTIONS (1)
  - Cushing^s syndrome [Unknown]
